FAERS Safety Report 22230406 (Version 2)
Quarter: 2023Q2

REPORT INFORMATION
  Report Type: Report from Study
  Country: AU (occurrence: AU)
  Receive Date: 20230419
  Receipt Date: 20230504
  Transmission Date: 20230722
  Serious: Yes (Hospitalization)
  Sender: FDA-Public Use
  Company Number: AU-ABBVIE-4731927

PATIENT
  Age: 70 Year
  Sex: Female
  Weight: 60 kg

DRUGS (33)
  1. VENETOCLAX [Suspect]
     Active Substance: VENETOCLAX
     Indication: Acute myeloid leukaemia
     Route: 048
  2. VENETOCLAX [Suspect]
     Active Substance: VENETOCLAX
     Indication: Acute myeloid leukaemia
     Route: 048
     Dates: start: 20220503
  3. ACETAMINOPHEN [Concomitant]
     Active Substance: ACETAMINOPHEN
     Indication: Analgesic therapy
     Dosage: TIME INTERVAL: AS NECESSARY
     Route: 048
     Dates: start: 20230411, end: 20230412
  4. FILGRASTIM [Concomitant]
     Active Substance: FILGRASTIM
     Indication: Neutrophil count decreased
     Dosage: ONCE A DAY THREE TIMES A WEEK
     Dates: start: 20220531, end: 20220607
  5. FILGRASTIM [Concomitant]
     Active Substance: FILGRASTIM
     Indication: Neutrophil count decreased
     Dates: start: 20230411
  6. FILGRASTIM [Concomitant]
     Active Substance: FILGRASTIM
     Indication: Neutrophil count decreased
     Dosage: ONCE A DAY THREE TWICE A WEEK
     Dates: start: 20230411
  7. FILGRASTIM [Concomitant]
     Active Substance: FILGRASTIM
     Indication: Neutrophil count decreased
     Dosage: ONCE A DAY THREE TIMES A WEEK
     Dates: start: 20221229, end: 20230102
  8. FILGRASTIM [Concomitant]
     Active Substance: FILGRASTIM
     Indication: Neutrophil count decreased
     Dates: start: 20230307, end: 20230311
  9. FILGRASTIM [Concomitant]
     Active Substance: FILGRASTIM
     Indication: Neutrophil count decreased
     Dosage: ONCE A DAY THREE TIMES A WEEK
     Dates: start: 20230307, end: 20230311
  10. FILGRASTIM [Concomitant]
     Active Substance: FILGRASTIM
     Indication: Neutrophil count decreased
     Dosage: ONCE A DAY THREE TIMES A WEEK
     Dates: start: 20230131, end: 20230204
  11. FILGRASTIM [Concomitant]
     Active Substance: FILGRASTIM
     Indication: Neutrophil count decreased
     Dosage: ONCE A DAY THREE TIMES A WEEK
     Dates: start: 20220906, end: 20220910
  12. FILGRASTIM [Concomitant]
     Active Substance: FILGRASTIM
     Indication: Neutrophil count decreased
     Dosage: ONCE A DAY THREE TIMES A WEEK
     Dates: start: 20221018, end: 20221022
  13. FILGRASTIM [Concomitant]
     Active Substance: FILGRASTIM
     Indication: Neutrophil count decreased
     Dosage: ONCE A DAY THREE TIMES A WEEK
     Dates: start: 20221122, end: 20221126
  14. FILGRASTIM [Concomitant]
     Active Substance: FILGRASTIM
     Indication: Neutrophil count decreased
     Dosage: ONCE A DAY THREE TIMES A WEEK
     Dates: start: 20220705, end: 20220711
  15. DIETARY SUPPLEMENT\HERBALS\MILK THISTLE [Concomitant]
     Active Substance: MILK THISTLE
     Indication: Routine health maintenance
     Route: 048
     Dates: start: 20221116, end: 20221117
  16. HUMAN RED BLOOD CELL [Concomitant]
     Active Substance: HUMAN RED BLOOD CELL
     Indication: Anaemia
     Dates: start: 20220519, end: 20220519
  17. ALBUTEROL [Concomitant]
     Active Substance: ALBUTEROL
     Indication: Asthma exercise induced
     Dosage: TIME INTERVAL: AS NECESSARY
     Route: 055
     Dates: start: 2002
  18. VARICELLA-ZOSTER VACCINE NOS [Concomitant]
     Active Substance: VARICELLA-ZOSTER VACCINE
     Indication: Antiviral prophylaxis
     Dosage: TIME INTERVAL: TOTAL
     Dates: start: 20230411, end: 20230411
  19. VARICELLA-ZOSTER VACCINE NOS [Concomitant]
     Active Substance: VARICELLA-ZOSTER VACCINE
     Indication: Antiviral prophylaxis
     Dosage: TIME INTERVAL: TOTAL
     Route: 030
     Dates: start: 20230124, end: 20230124
  20. MIDOSTAURIN [Concomitant]
     Active Substance: MIDOSTAURIN
     Indication: Product used for unknown indication
     Route: 048
  21. MIDOSTAURIN [Concomitant]
     Active Substance: MIDOSTAURIN
     Indication: Product used for unknown indication
     Route: 048
     Dates: start: 20220513
  22. METHOXYFLURANE [Concomitant]
     Active Substance: METHOXYFLURANE
     Indication: Product used for unknown indication
     Dosage: TIME INTERVAL: AS NECESSARY
     Route: 055
     Dates: start: 20220426, end: 20220426
  23. METHOXYFLURANE [Concomitant]
     Active Substance: METHOXYFLURANE
     Indication: Product used for unknown indication
     Dosage: TIME INTERVAL: AS NECESSARY
     Route: 055
     Dates: start: 20220530, end: 20220530
  24. CYCLIZINE [Concomitant]
     Active Substance: CYCLIZINE
     Indication: Nausea
     Route: 048
     Dates: start: 20220513
  25. Eformoterl [Concomitant]
     Indication: Asthma exercise induced
     Dosage: TIME INTERVAL: AS NECESSARY
     Route: 055
     Dates: start: 2002
  26. PANTOPRAZOLE [Concomitant]
     Active Substance: PANTOPRAZOLE
     Indication: Gastrooesophageal reflux disease
     Route: 048
     Dates: start: 2020
  27. PLATELETS [Concomitant]
     Active Substance: HUMAN PLATELET, ALLOGENIC
     Indication: Platelet count decreased
     Dates: start: 20220517, end: 20220517
  28. PLATELETS [Concomitant]
     Active Substance: HUMAN PLATELET, ALLOGENIC
     Indication: Platelet count decreased
     Dates: start: 20220511, end: 20220511
  29. PLATELETS [Concomitant]
     Active Substance: HUMAN PLATELET, ALLOGENIC
     Indication: Platelet count decreased
     Dates: start: 20230220, end: 20230220
  30. Vitamin C Forte [Concomitant]
     Indication: Prophylaxis
     Dosage: IN THE MORNING
     Route: 048
     Dates: start: 2022
  31. CALCIUM [Concomitant]
     Active Substance: CALCIUM
     Indication: Osteoporosis
     Dosage: IN THE MORNING
     Route: 048
     Dates: start: 1992
  32. MAGNESIUM [Concomitant]
     Active Substance: MAGNESIUM
     Indication: Prophylaxis
     Dosage: IN THE NIGHT
     Route: 048
     Dates: start: 2020
  33. L - glutamine Powder [Concomitant]
     Indication: Irritable bowel syndrome
     Dosage: 1 IN THE MORNING
     Route: 048
     Dates: start: 1992

REACTIONS (1)
  - Pyrexia [Recovered/Resolved]

NARRATIVE: CASE EVENT DATE: 20230412
